FAERS Safety Report 22522627 (Version 1)
Quarter: 2023Q2

REPORT INFORMATION
  Report Type: Report from Study
  Country: EG (occurrence: EG)
  Receive Date: 20230605
  Receipt Date: 20230605
  Transmission Date: 20230722
  Serious: Yes (Other)
  Sender: FDA-Public Use
  Company Number: EG-002147023-NVSC2023EG126861

PATIENT
  Age: 12 Year
  Sex: Male

DRUGS (6)
  1. OMNITROPE [Suspect]
     Active Substance: SOMATROPIN
     Indication: Growth hormone deficiency
     Dosage: 1.1 MG, QD
     Route: 058
     Dates: start: 202112, end: 202203
  2. OMNITROPE [Suspect]
     Active Substance: SOMATROPIN
     Dosage: 1.3 MG, QD
     Route: 058
  3. OSTEOCARE [Concomitant]
     Active Substance: CALCIUM\CHOLECALCIFEROL\MAGNESIUM\ZINC
     Indication: Vitamin supplementation
     Dosage: 1 DOSAGE FORM, QD
     Route: 048
     Dates: start: 202103
  4. VIDROP [Concomitant]
     Indication: Vitamin supplementation
     Dosage: UNK, QD (1 DROPPER DAILY, STARTED SINCE BIRTH)
     Route: 048
  5. DEVAROL [Concomitant]
     Indication: Vitamin supplementation
     Dosage: UNK (1 AMPOULE INJECTED EVERY MONTH THEN CHANGED DOSE TO 1 AMPOULE INJECTED EVERY 3 MONTHS)
     Route: 048
     Dates: start: 202103
  6. OCTOZINC [Concomitant]
     Indication: Vitamin supplementation
     Dosage: 1 DOSAGE FORM, QD
     Route: 048
     Dates: start: 202103

REACTIONS (9)
  - Spinal deformity [Recovering/Resolving]
  - Injection site pain [Recovered/Resolved]
  - Inappropriate schedule of product administration [Recovered/Resolved]
  - Wrong technique in product usage process [Recovered/Resolved]
  - Device use issue [Recovered/Resolved]
  - Multiple use of single-use product [Recovered/Resolved]
  - Incorrect dose administered [Recovered/Resolved]
  - Device malfunction [Unknown]
  - Device leakage [Unknown]

NARRATIVE: CASE EVENT DATE: 20211201
